FAERS Safety Report 15227983 (Version 1)
Quarter: 2018Q3

REPORT INFORMATION
  Report Type: Spontaneous
  Country: US (occurrence: US)
  Receive Date: 20180706
  Receipt Date: 20180706
  Transmission Date: 20181010
  Serious: Yes (Disabling, Other)
  Sender: FDA-Public Use
  Company Number: None

PATIENT
  Age: 57 Year
  Sex: Female
  Weight: 70.31 kg

DRUGS (3)
  1. VRAYLAR [Suspect]
     Active Substance: CARIPRAZINE
     Indication: PRODUCT USED FOR UNKNOWN INDICATION
     Route: 048
     Dates: start: 201805
  2. SIMIVASTATIN [Concomitant]
  3. TEGRETOL [Concomitant]
     Active Substance: CARBAMAZEPINE

REACTIONS (7)
  - Heart rate increased [None]
  - Uterine disorder [None]
  - Headache [None]
  - Drug effect variable [None]
  - Victim of abuse [None]
  - Aggression [None]
  - Quality of life decreased [None]

NARRATIVE: CASE EVENT DATE: 201805
